FAERS Safety Report 9542622 (Version 2)
Quarter: 2013Q4

REPORT INFORMATION
  Report Type: Spontaneous
  Country: US (occurrence: US)
  Receive Date: 20130923
  Receipt Date: 20131009
  Transmission Date: 20140711
  Serious: Yes (Other)
  Sender: FDA-Public Use
  Company Number: US-PFIZER INC-2013271280

PATIENT
  Age: 70 Year
  Sex: Female
  Weight: 104 kg

DRUGS (7)
  1. LIPITOR [Suspect]
     Dosage: UNK
     Dates: end: 2013
  2. TOVIAZ [Suspect]
     Indication: POLLAKIURIA
     Dosage: 8 MG, DAILY
  3. IBUPROFEN [Concomitant]
     Dosage: 800 MG, AS NEEDED
  4. AMLODIPINE/HYDROCHLOROTHIAZIDE [Concomitant]
     Dosage: ^12.5MG^ (AS REPORTED) DAILY
  5. LEVOTHYROXINE [Concomitant]
     Dosage: 100 UG, DAILY
  6. GLIPIZIDE [Concomitant]
     Indication: DIABETES MELLITUS
     Dosage: 4 MG, 2X/DAY
  7. METFORMIN HYDROCHLORIDE [Concomitant]
     Dosage: 500 MG, 2X/DAY

REACTIONS (4)
  - Cerebrovascular accident [Unknown]
  - Concussion [Unknown]
  - Mental impairment [Unknown]
  - Pain in extremity [Unknown]
